FAERS Safety Report 6059487-3 (Version None)
Quarter: 2009Q1

REPORT INFORMATION
  Report Type: 
  Country: None (occurrence: None)
  Receive Date: 20090130
  Receipt Date: 20090120
  Transmission Date: 20090719
  Serious: Yes (Hospitalization, Other)
  Sender: FDA-Public Use
  Company Number: JP-PFIZER INC-2008159587

PATIENT

DRUGS (3)
  1. MEDROL [Suspect]
     Indication: IMMUNOSUPPRESSION
     Dosage: UNK
     Route: 048
     Dates: start: 20060501
  2. CELLCEPT [Suspect]
     Dosage: UNK
     Route: 048
     Dates: start: 20060501
  3. TACROLIMUS [Suspect]
     Dosage: UNK
     Route: 048
     Dates: start: 20060501

REACTIONS (1)
  - OPPORTUNISTIC INFECTION [None]
